FAERS Safety Report 8512574-X (Version None)
Quarter: 2012Q3

REPORT INFORMATION
  Report Type: 
  Country: None (occurrence: None)
  Receive Date: 20120716
  Receipt Date: 20120704
  Transmission Date: 20120928
  Serious: Yes (Hospitalization)
  Sender: FDA-Public Use
  Company Number: FR-ROCHE-1084473

PATIENT
  Sex: Male
  Weight: 63 kg

DRUGS (6)
  1. SUBUTEX [Concomitant]
     Route: 048
     Dates: start: 20120102
  2. TRANSIPEG (FRANCE) [Concomitant]
     Indication: CONSTIPATION
     Route: 048
     Dates: start: 20120102
  3. COPEGUS [Suspect]
     Indication: HEPATITIS C
     Route: 048
     Dates: start: 20110429, end: 20111015
  4. TRANXENE [Concomitant]
     Indication: ANXIETY
     Route: 048
     Dates: start: 20120102
  5. PEGASYS [Suspect]
     Indication: HEPATITIS C
     Route: 042
     Dates: start: 20110429, end: 20111208
  6. ALDACTONE [Concomitant]
     Indication: HYPERTENSION
     Route: 048
     Dates: start: 20120108

REACTIONS (1)
  - ASCITES [None]
